FAERS Safety Report 16315653 (Version 1)
Quarter: 2019Q2

REPORT INFORMATION
  Report Type: Spontaneous
  Country: KR (occurrence: KR)
  Receive Date: 20190515
  Receipt Date: 20190515
  Transmission Date: 20190711
  Serious: Yes (Hospitalization)
  Sender: FDA-Public Use
  Company Number: KR-ALLERGAN-1920163US

PATIENT
  Sex: Female

DRUGS (2)
  1. BOTULINUM TOXIN TYPE A - BP [Suspect]
     Active Substance: BOTULINUM TOXIN TYPE A
     Indication: SKIN WRINKLING
     Dosage: UNK, SINGLE
     Route: 030
  2. BOTULINUM TOXIN TYPE A - BP [Suspect]
     Active Substance: BOTULINUM TOXIN TYPE A
     Indication: MUSCLE HYPERTROPHY
     Dosage: 50 UNITS, SINGLE
     Route: 030
     Dates: start: 20190424, end: 20190424

REACTIONS (5)
  - Pain in jaw [Unknown]
  - Off label use [Unknown]
  - Dyspnoea [Unknown]
  - Asthenia [Unknown]
  - Neck pain [Unknown]

NARRATIVE: CASE EVENT DATE: 20190424
